FAERS Safety Report 18882167 (Version 3)
Quarter: 2021Q2

REPORT INFORMATION
  Report Type: Report from Study
  Country: None (occurrence: US)
  Receive Date: 20210212
  Receipt Date: 20210407
  Transmission Date: 20210717
  Serious: Yes (Other)
  Sender: FDA-Public Use
  Company Number: US-ABBVIE-21K-163-3771112-00

PATIENT
  Sex: Female
  Weight: 90.35 kg

DRUGS (2)
  1. PENTASA [Concomitant]
     Active Substance: MESALAMINE
     Indication: PRODUCT USED FOR UNKNOWN INDICATION
  2. HUMIRA [Suspect]
     Active Substance: ADALIMUMAB
     Indication: CROHN^S DISEASE
     Dosage: CITRATE FREE
     Route: 058
     Dates: end: 202011

REACTIONS (4)
  - Systemic lupus erythematosus [Not Recovered/Not Resolved]
  - Musculoskeletal disorder [Unknown]
  - Herpes zoster [Unknown]
  - Gait inability [Unknown]
